FAERS Safety Report 5799290-2 (Version None)
Quarter: 2008Q3

REPORT INFORMATION
  Report Type: 
  Country: None (occurrence: None)
  Receive Date: 20080702
  Receipt Date: 20080625
  Transmission Date: 20090109
  Serious: Yes (Other)
  Sender: FDA-Public Use
  Company Number: AT-PFIZER INC-2008052086

PATIENT
  Age: 87 Year
  Sex: Male

DRUGS (1)
  1. LYRICA [Suspect]
     Indication: TRIGEMINAL NEURALGIA
     Dosage: DAILY DOSE:150MG
     Route: 048
     Dates: start: 20060101, end: 20080617

REACTIONS (3)
  - DIZZINESS [None]
  - PAIN [None]
  - PARALYSIS [None]
